FAERS Safety Report 21280292 (Version 2)
Quarter: 2022Q3

REPORT INFORMATION
  Report Type: Spontaneous
  Country: DE (occurrence: DE)
  Receive Date: 20220901
  Receipt Date: 20220907
  Transmission Date: 20221027
  Serious: Yes (Other)
  Sender: FDA-Public Use
  Company Number: DE-TEVA-2022-DE-2068080

PATIENT
  Sex: Female

DRUGS (2)
  1. ZINC [Suspect]
     Active Substance: ZINC
     Indication: Zinc deficiency
     Route: 048
     Dates: start: 20220820, end: 202208
  2. ZINC [Suspect]
     Active Substance: ZINC
     Indication: Immunisation

REACTIONS (3)
  - Sudden hearing loss [Recovered/Resolved]
  - Visual impairment [Recovered/Resolved]
  - Cervicogenic headache [Recovered/Resolved]

NARRATIVE: CASE EVENT DATE: 20220820
